FAERS Safety Report 10562709 (Version 1)
Quarter: 2014Q4

REPORT INFORMATION
  Report Type: Spontaneous
  Country: US (occurrence: None)
  Receive Date: 20141103
  Receipt Date: 20141103
  Transmission Date: 20150529
  Serious: Yes (Disabling, Other)
  Sender: FDA-Public Use
  Company Number: None

PATIENT
  Age: 30 Year
  Sex: Female
  Weight: 56.7 kg

DRUGS (1)
  1. SENSODYNE [Suspect]
     Active Substance: POTASSIUM NITRATE\SODIUM FLUORIDE
     Indication: SENSITIVITY OF TEETH
     Dates: start: 20141024, end: 20141024

REACTIONS (6)
  - Pharyngeal oedema [None]
  - Oropharyngeal pain [None]
  - Swollen tongue [None]
  - Pain [None]
  - Gingival atrophy [None]
  - Stomatitis [None]

NARRATIVE: CASE EVENT DATE: 20141024
